FAERS Safety Report 26160202 (Version 2)
Quarter: 2025Q4

REPORT INFORMATION
  Report Type: Spontaneous
  Country: US (occurrence: US)
  Receive Date: 20251216
  Receipt Date: 20251218
  Transmission Date: 20260117
  Serious: Yes (Other)
  Sender: Thea Pharma
  Company Number: US-THEA-2025003103

PATIENT
  Sex: Female

DRUGS (1)
  1. COSMETICS [Suspect]
     Active Substance: COSMETICS
     Indication: Product used for unknown indication
     Route: 061
     Dates: start: 20251202

REACTIONS (4)
  - Chemical burns of eye [Not Recovered/Not Resolved]
  - Facial paralysis [Recovered/Resolved]
  - Accidental exposure to product packaging [Unknown]
  - Vision blurred [Not Recovered/Not Resolved]

NARRATIVE: CASE EVENT DATE: 20251201
